FAERS Safety Report 4426347-0 (Version None)
Quarter: 2004Q3

REPORT INFORMATION
  Report Type: 
  Country: None (occurrence: None)
  Receive Date: 20040810
  Receipt Date: 20040720
  Transmission Date: 20050211
  Serious: Yes (Other)
  Sender: FDA-Public Use
  Company Number: WAES 0407USA01771

PATIENT
  Sex: Male

DRUGS (3)
  1. COZAAR [Suspect]
     Indication: HYPERTENSION
     Dosage: 25 MG/DAILY; 50 MG/DAILY
     Route: 048
     Dates: start: 20020125, end: 20020131
  2. CONIEL [Concomitant]
  3. NICARDIPINE HCL [Concomitant]

REACTIONS (1)
  - GLUCOSE URINE PRESENT [None]
